FAERS Safety Report 6025933-4 (Version None)
Quarter: 2008Q4

REPORT INFORMATION
  Report Type: 
  Country: None (occurrence: None)
  Receive Date: 20081230
  Receipt Date: 20081215
  Transmission Date: 20090506
  Serious: Yes (Hospitalization)
  Sender: FDA-Public Use
  Company Number: KV200801155

PATIENT
  Age: 67 Year
  Sex: Male

DRUGS (2)
  1. PROPANEFONE HYDROCHLORIDE(PROPAFENONE HYDROCHLORIDE) TABLET [Suspect]
     Indication: ARRHYTHMIA
     Dosage: 150 MG, TID, ORAL
     Route: 048
     Dates: start: 20070101
  2. BENICAR [Concomitant]

REACTIONS (1)
  - CEREBROVASCULAR ACCIDENT [None]
